FAERS Safety Report 14404244 (Version 6)
Quarter: 2019Q3

REPORT INFORMATION
  Report Type: Spontaneous
  Country: US (occurrence: US)
  Receive Date: 20180117
  Receipt Date: 20190704
  Transmission Date: 20191004
  Serious: Yes (Hospitalization)
  Sender: FDA-Public Use
  Company Number: US-DSJP-DSU-2017-140468

PATIENT

DRUGS (3)
  1. BENICAR [Suspect]
     Active Substance: OLMESARTAN MEDOXOMIL
     Dosage: 40 MG, QD
     Route: 048
     Dates: start: 20050801
  2. BENICAR [Suspect]
     Active Substance: OLMESARTAN MEDOXOMIL
     Indication: HYPERTENSION
     Dosage: 20 MG, QD
     Dates: start: 20040607, end: 20051104
  3. BENICAR [Suspect]
     Active Substance: OLMESARTAN MEDOXOMIL
     Dosage: 40 MG, QD
     Dates: start: 20051104, end: 20070907

REACTIONS (4)
  - Coeliac disease [Recovering/Resolving]
  - Haemorrhoids [Unknown]
  - Diverticulum intestinal [Unknown]
  - Sprue-like enteropathy [Recovering/Resolving]

NARRATIVE: CASE EVENT DATE: 20060601
